FAERS Safety Report 16158008 (Version 1)
Quarter: 2019Q2

REPORT INFORMATION
  Report Type: Spontaneous
  Country: DE (occurrence: DE)
  Receive Date: 20190404
  Receipt Date: 20190404
  Transmission Date: 20190711
  Serious: Yes (Hospitalization, Other)
  Sender: FDA-Public Use
  Company Number: DE-ASTRAZENECA-2019SE48499

PATIENT
  Age: 81 Year
  Sex: Female

DRUGS (3)
  1. FULVESTRANT. [Suspect]
     Active Substance: FULVESTRANT
     Indication: BREAST CANCER METASTATIC
     Dosage: UNK
     Route: 030
     Dates: start: 201807
  2. IBRANCE [Suspect]
     Active Substance: PALBOCICLIB
     Dosage: 100 MG, UNK100.0MG UNKNOWN
     Route: 048
  3. OXYGEN. [Concomitant]
     Active Substance: OXYGEN

REACTIONS (6)
  - Pleural effusion [Unknown]
  - Respiratory failure [Unknown]
  - Cardiac failure [Unknown]
  - Chronic obstructive pulmonary disease [Recovered/Resolved]
  - Neutropenia [Unknown]
  - Dyspnoea exertional [Unknown]

NARRATIVE: CASE EVENT DATE: 201810
